FAERS Safety Report 16009989 (Version 1)
Quarter: 2019Q1

REPORT INFORMATION
  Report Type: Spontaneous
  Country: FR (occurrence: FR)
  Receive Date: 20190227
  Receipt Date: 20190227
  Transmission Date: 20190418
  Serious: Yes (Hospitalization)
  Sender: FDA-Public Use
  Company Number: FR-TEVA-2019-FR-1016144

PATIENT
  Age: 72 Year
  Sex: Female
  Weight: 79 kg

DRUGS (2)
  1. VALSARTAN HYDROCHLOROTHIAZIDE TEVA 160 MG/25 MG, COMPRIM? PELLICUL? [Suspect]
     Active Substance: HYDROCHLOROTHIAZIDE\VALSARTAN
     Indication: HYPERTENSION
     Route: 048
     Dates: start: 20160903
  2. VALSARTAN HYDROCHLOROTHIAZIDE MYLAN 160 MG/25 MG, COMPRIM? PELLICUL? [Suspect]
     Active Substance: HYDROCHLOROTHIAZIDE\VALSARTAN
     Indication: HYPERTENSION
     Dosage: VALSARTAN 160 MG + HYDROCHLOROTHIAZIDE 25 MG
     Route: 048
     Dates: start: 20140325

REACTIONS (4)
  - Malignant peritoneal neoplasm [Not Recovered/Not Resolved]
  - Product impurity [Recovered/Resolved]
  - Ovarian cancer [Not Recovered/Not Resolved]
  - Product quality issue [Recovered/Resolved]

NARRATIVE: CASE EVENT DATE: 201807
